FAERS Safety Report 19372567 (Version 1)
Quarter: 2021Q2

REPORT INFORMATION
  Report Type: Spontaneous
  Country: FR (occurrence: FR)
  Receive Date: 20210604
  Receipt Date: 20210604
  Transmission Date: 20210717
  Serious: Yes (Life-Threatening, Hospitalization, Other)
  Sender: FDA-Public Use
  Company Number: FR-AUROBINDO-AUR-APL-2021-022055

PATIENT
  Age: 56 Year
  Sex: Female

DRUGS (10)
  1. CARBOPLATIN. [Suspect]
     Active Substance: CARBOPLATIN
     Dosage: UNK
     Route: 065
  2. CAELYX [Suspect]
     Active Substance: DOXORUBICIN HYDROCHLORIDE
     Indication: OVARIAN CANCER STAGE IV
     Dosage: UNK
     Route: 065
  3. CARBOPLATIN. [Suspect]
     Active Substance: CARBOPLATIN
     Dosage: UNK
     Route: 065
  4. CARBOPLATIN. [Suspect]
     Active Substance: CARBOPLATIN
     Dosage: UNK
     Route: 065
  5. TAXOL [Suspect]
     Active Substance: PACLITAXEL
     Indication: OVARIAN CANCER STAGE IV
     Dosage: UNK
     Route: 065
  6. TAXOL [Suspect]
     Active Substance: PACLITAXEL
     Dosage: UNK
     Route: 065
  7. GEMZAR [Suspect]
     Active Substance: GEMCITABINE HYDROCHLORIDE
     Indication: OVARIAN CANCER STAGE IV
     Dosage: UNK
     Route: 065
  8. ENDOXAN [Suspect]
     Active Substance: CYCLOPHOSPHAMIDE
     Indication: OVARIAN CANCER STAGE IV
     Dosage: UNK
     Route: 065
  9. CARBOPLATIN. [Suspect]
     Active Substance: CARBOPLATIN
     Indication: OVARIAN CANCER STAGE IV
     Dosage: UNK
     Route: 065
  10. LYNPARZA [Suspect]
     Active Substance: OLAPARIB
     Indication: OVARIAN CANCER STAGE IV
     Dosage: UNK
     Route: 048

REACTIONS (9)
  - Anaemia [Unknown]
  - General physical health deterioration [Unknown]
  - Blast cells present [Unknown]
  - Acute myeloid leukaemia [Unknown]
  - Asthenia [Unknown]
  - Metastases to peritoneum [Not Recovered/Not Resolved]
  - Metastases to lymph nodes [Unknown]
  - Metastases to pleura [Not Recovered/Not Resolved]
  - Thrombocytopenia [Unknown]

NARRATIVE: CASE EVENT DATE: 2017
